FAERS Safety Report 9524618 (Version 1)
Quarter: 2013Q1

REPORT INFORMATION
  Report Type: Spontaneous
  Country: US (occurrence: None)
  Receive Date: 20130305
  Receipt Date: 20130305
  Transmission Date: 20140127
  Serious: Yes (Other)
  Sender: FDA-Public Use
  Company Number: 163-21880-12022282

PATIENT
  Sex: 0

DRUGS (14)
  1. REVLIMID [Suspect]
     Indication: PLASMA CELL MYELOMA
     Route: 048
     Dates: start: 201102
  2. TRANDATE (LABETALOL HYDROCHLORIDE) [Concomitant]
  3. METOCLOPRAMIDE [Concomitant]
  4. NITROGLYCERINE (GLYCERYL TRINITRATE) [Concomitant]
  5. TORSEMIDE [Concomitant]
  6. LIPITOR (ATORVASTATIN) [Concomitant]
  7. MULTIVITAMINS [Concomitant]
  8. ASPIRIN (ACETYLSALICYLIC ACID) [Concomitant]
  9. KLOR-CON (POTASSIUM CHLORIDE) [Concomitant]
  10. DEXAMETHASONE [Concomitant]
  11. FELODIPINE [Concomitant]
  12. ISOSORBIDE MONONITRATE [Concomitant]
  13. METOPROLOL [Concomitant]
  14. ARANESP (DARBEPOETIN ALFA) [Concomitant]

REACTIONS (1)
  - Thrombocytopenia [None]
